FAERS Safety Report 13763939 (Version 1)
Quarter: 2017Q3

REPORT INFORMATION
  Report Type: Spontaneous
  Country: FR (occurrence: FR)
  Receive Date: 20170718
  Receipt Date: 20170718
  Transmission Date: 20171127
  Serious: Yes (Hospitalization, Other)
  Sender: FDA-Public Use
  Company Number: FR-PFIZER INC-2017301696

PATIENT
  Age: 49 Year
  Sex: Male

DRUGS (4)
  1. XEROQUEL [Suspect]
     Active Substance: QUETIAPINE FUMARATE
     Dosage: 300 MG, 6-7 TABLETS IN ONE DAY
     Route: 048
     Dates: start: 20170504, end: 20170504
  2. XANAX [Suspect]
     Active Substance: ALPRAZOLAM
     Indication: ANXIETY
     Dosage: 0.25 MG, 4-5 TABLETS IN ONE DAY
     Route: 048
     Dates: start: 20170504, end: 20170504
  3. XEROQUEL [Suspect]
     Active Substance: QUETIAPINE FUMARATE
     Dosage: 300 MG, 1X/DAY
     Route: 048
  4. XANAX [Suspect]
     Active Substance: ALPRAZOLAM
     Indication: STRESS
     Dosage: 0.25 MG, AS NEEDED
     Route: 048

REACTIONS (7)
  - Miosis [Unknown]
  - Somnolence [Recovered/Resolved]
  - Vomiting [Unknown]
  - Toxicity to various agents [Unknown]
  - Rhabdomyolysis [Recovered/Resolved]
  - Hepatic enzyme increased [Unknown]
  - Back pain [Unknown]

NARRATIVE: CASE EVENT DATE: 20170505
